FAERS Safety Report 7120208-4 (Version None)
Quarter: 2010Q4

REPORT INFORMATION
  Report Type: 
  Country: None (occurrence: None)
  Receive Date: 20101123
  Receipt Date: 20101112
  Transmission Date: 20110411
  Serious: Yes (Death, Other)
  Sender: FDA-Public Use
  Company Number: US-BAXTER-2010BH024791

PATIENT
  Age: 42 Year
  Sex: Male

DRUGS (7)
  1. DIANEAL [Suspect]
     Indication: PERITONEAL DIALYSIS
     Route: 033
     Dates: start: 20070101, end: 20100101
  2. AMIODARONE [Concomitant]
  3. POTASSIUM CHLORIDE [Concomitant]
  4. SYNTHROID [Concomitant]
  5. MEGACE [Concomitant]
  6. IMDUR [Concomitant]
  7. ASA ARTHRITIS STRENGTH ASPIRIN [Concomitant]

REACTIONS (2)
  - INTESTINAL PERFORATION [None]
  - PERITONITIS BACTERIAL [None]
